FAERS Safety Report 8840878 (Version 2)
Quarter: 2012Q4

REPORT INFORMATION
  Report Type: 
  Country: JP (occurrence: JP)
  Receive Date: 20121015
  Receipt Date: 20121024
  Transmission Date: 20130627
  Serious: Yes (Hospitalization)
  Sender: FDA-Public Use
  Company Number: PHHY2012JP090855

PATIENT
  Age: 57 Year
  Sex: Male

DRUGS (1)
  1. DICLOFENAC [Suspect]
     Indication: BACK PAIN
     Route: 048
     Dates: start: 201109

REACTIONS (9)
  - Nephrotic syndrome [Recovering/Resolving]
  - Oedema peripheral [Recovering/Resolving]
  - Hyperplasia [Recovering/Resolving]
  - Kidney enlargement [Recovering/Resolving]
  - Glomerulonephritis minimal lesion [Recovering/Resolving]
  - Renal failure acute [Recovering/Resolving]
  - Gastric ulcer haemorrhage [Recovering/Resolving]
  - Abdominal pain [Recovering/Resolving]
  - Abdominal tenderness [Recovering/Resolving]
